FAERS Safety Report 18898613 (Version 1)
Quarter: 2021Q1

REPORT INFORMATION
  Report Type: Spontaneous
  Country: US (occurrence: US)
  Receive Date: 20210215
  Receipt Date: 20210215
  Transmission Date: 20210420
  Serious: Yes (Other)
  Sender: FDA-Public Use
  Company Number: None

PATIENT
  Age: 37 Year
  Sex: Female
  Weight: 64.41 kg

DRUGS (5)
  1. LAMOTRIGINE. [Concomitant]
     Active Substance: LAMOTRIGINE
  2. ASENAPINE. [Suspect]
     Active Substance: ASENAPINE
     Indication: BIPOLAR DISORDER
     Route: 058
     Dates: start: 20210202
  3. NALTREXONE [Concomitant]
     Active Substance: NALTREXONE
  4. CLONIDINE. [Concomitant]
     Active Substance: CLONIDINE
  5. BUPROPION. [Concomitant]
     Active Substance: BUPROPION

REACTIONS (4)
  - Product substitution issue [None]
  - Anxiety [None]
  - Constipation [None]
  - Poor quality sleep [None]

NARRATIVE: CASE EVENT DATE: 20210202
